APPROVED DRUG PRODUCT: ZALEPLON
Active Ingredient: ZALEPLON
Strength: 10MG
Dosage Form/Route: CAPSULE;ORAL
Application: A078706 | Product #002
Applicant: UPSHER SMITH LABORATORIES LLC
Approved: Jun 6, 2008 | RLD: No | RS: No | Type: DISCN